FAERS Safety Report 8544319-1 (Version None)
Quarter: 2012Q3

REPORT INFORMATION
  Report Type: 
  Country: None (occurrence: None)
  Receive Date: 20120719
  Receipt Date: 20120719
  Transmission Date: 20120928
  Serious: Yes (Other)
  Sender: FDA-Public Use
  Company Number: None

PATIENT
  Sex: Female
  Weight: 92.0802 kg

DRUGS (1)
  1. MIRENA [Suspect]
     Indication: CONTRACEPTION
     Dosage: ONE INSERT 5 YEARS INTRA-UTERINE
     Route: 015
     Dates: start: 20120315, end: 20120718

REACTIONS (3)
  - SECRETION DISCHARGE [None]
  - PRURITUS [None]
  - LIP DISORDER [None]
